FAERS Safety Report 16765683 (Version 1)
Quarter: 2019Q3

REPORT INFORMATION
  Report Type: Spontaneous
  Country: FR (occurrence: FR)
  Receive Date: 20190903
  Receipt Date: 20190903
  Transmission Date: 20191005
  Serious: Yes (Other)
  Sender: FDA-Public Use
  Company Number: FR-BAXTER-2019BAX016870

PATIENT
  Age: 17 Year
  Sex: Male
  Weight: 51 kg

DRUGS (11)
  1. OFLOCET [Suspect]
     Active Substance: OFLOXACIN
     Indication: SINUSITIS
     Route: 048
     Dates: start: 20190209, end: 20190213
  2. ADRIBLASTINE [Concomitant]
     Active Substance: DOXORUBICIN
     Indication: LYMPHOMA
     Route: 042
     Dates: start: 20190130, end: 20190130
  3. MESNA. [Concomitant]
     Active Substance: MESNA
     Indication: DRUG TOXICITY PROPHYLAXIS
     Route: 042
     Dates: start: 20190130, end: 20190130
  4. NATULAN [Concomitant]
     Active Substance: PROCARBAZINE HYDROCHLORIDE
     Indication: LYMPHOMA
     Route: 042
     Dates: start: 20190130, end: 20190205
  5. ENDOXAN 1000 MG, POUDRE POUR SOLUTIONINJECTABLE [Suspect]
     Active Substance: CYCLOPHOSPHAMIDE
     Indication: LYMPHOMA
     Route: 042
     Dates: start: 20190130, end: 20190130
  6. AUGMENTIN [Suspect]
     Active Substance: AMOXICILLIN\CLAVULANATE POTASSIUM
     Indication: SINUSITIS
     Route: 048
     Dates: start: 20190209, end: 20190213
  7. GRANOCYTE [Suspect]
     Active Substance: LENOGRASTIM
     Indication: COLONY STIMULATING FACTOR THERAPY
     Route: 058
     Dates: start: 20190207, end: 20190213
  8. VINCRISTINE HOSPIRA [Concomitant]
     Active Substance: VINCRISTINE
     Indication: LYMPHOMA
     Route: 042
     Dates: start: 20190206, end: 20190206
  9. TRIFLUCAN [Suspect]
     Active Substance: FLUCONAZOLE
     Indication: SINUSITIS
     Route: 048
     Dates: start: 20190209, end: 20190213
  10. ETOPOSIDE. [Concomitant]
     Active Substance: ETOPOSIDE
     Indication: LYMPHOMA
     Route: 042
     Dates: start: 20190130, end: 20190201
  11. BLEOMYCIN BELLON [Concomitant]
     Active Substance: BLEOMYCIN SULFATE
     Indication: LYMPHOMA
     Route: 042
     Dates: start: 20190206, end: 20190206

REACTIONS (2)
  - Angioedema [Recovered/Resolved]
  - Urticaria [Recovered/Resolved]

NARRATIVE: CASE EVENT DATE: 20190213
